FAERS Safety Report 15858653 (Version 5)
Quarter: 2019Q2

REPORT INFORMATION
  Report Type: Spontaneous
  Country: US (occurrence: US)
  Receive Date: 20190123
  Receipt Date: 20190530
  Transmission Date: 20190711
  Serious: No
  Sender: FDA-Public Use
  Company Number: US-PFIZER INC-2019025601

PATIENT
  Age: 58 Year
  Sex: Female
  Weight: 68.4 kg

DRUGS (3)
  1. LEVOTHYROXINE. [Concomitant]
     Active Substance: LEVOTHYROXINE
     Indication: THYROID DISORDER
     Dosage: 88 MG, DAILY
     Route: 048
     Dates: start: 201806
  2. SOMAVERT [Suspect]
     Active Substance: PEGVISOMANT
     Dosage: 20 MG, 2X/WEEK
     Dates: start: 20190105
  3. SOMAVERT [Suspect]
     Active Substance: PEGVISOMANT
     Indication: PITUITARY TUMOUR BENIGN
     Dosage: 20 MG, 2X/WEEK
     Dates: start: 201901

REACTIONS (5)
  - Product use in unapproved indication [Recovered/Resolved]
  - Skin disorder [Recovered/Resolved]
  - Skin discolouration [Recovered/Resolved]
  - Product use issue [Unknown]
  - Off label use [Unknown]

NARRATIVE: CASE EVENT DATE: 20190105
